FAERS Safety Report 25558443 (Version 1)
Quarter: 2025Q3

REPORT INFORMATION
  Report Type: Spontaneous
  Country: US (occurrence: US)
  Receive Date: 20250715
  Receipt Date: 20250715
  Transmission Date: 20251021
  Serious: No
  Sender: INTRABIO
  Company Number: US-IBO-202500077

PATIENT
  Age: 2 Year
  Sex: Male
  Weight: 14 kg

DRUGS (1)
  1. AQNEURSA [Suspect]
     Active Substance: LEVACETYLLEUCINE
     Indication: Product used for unknown indication
     Route: 065
     Dates: start: 20250326

REACTIONS (4)
  - Flushing [Unknown]
  - Product use issue [Unknown]
  - Skin warm [Unknown]
  - Hyperhidrosis [Unknown]

NARRATIVE: CASE EVENT DATE: 20250326
